FAERS Safety Report 5078971-2 (Version None)
Quarter: 2006Q3

REPORT INFORMATION
  Report Type: 
  Country: None (occurrence: None)
  Receive Date: 20060814
  Receipt Date: 20060804
  Transmission Date: 20061208
  Serious: Yes (Hospitalization)
  Sender: FDA-Public Use
  Company Number: MX-JNJFOC-20060801515

PATIENT
  Age: 68 Year
  Sex: Female

DRUGS (1)
  1. TOPAMAX [Suspect]
     Indication: HALLUCINATION
     Route: 048

REACTIONS (3)
  - AKATHISIA [None]
  - HIP SURGERY [None]
  - PSYCHOMOTOR HYPERACTIVITY [None]
